FAERS Safety Report 24861646 (Version 3)
Quarter: 2025Q1

REPORT INFORMATION
  Report Type: Spontaneous
  Country: US (occurrence: US)
  Receive Date: 20250120
  Receipt Date: 20250208
  Transmission Date: 20250408
  Serious: Yes (Hospitalization, Other)
  Sender: AUROBINDO
  Company Number: US-MLMSERVICE-20241230-PI327937-00104-1

PATIENT
  Age: 14 Year
  Sex: Female
  Weight: 53.6 kg

DRUGS (4)
  1. CLINDAMYCIN [Suspect]
     Active Substance: CLINDAMYCIN
     Indication: Cellulitis staphylococcal
     Dosage: 720 MG (40 MG/KG/DAY/DIVIDED EVERY 8 HOURS)
     Route: 065
  2. PIPERACILLIN AND TAZOBACTAM [Suspect]
     Active Substance: PIPERACILLIN SODIUM\TAZOBACTAM SODIUM
     Indication: Necrotising fasciitis
     Route: 042
  3. VANCOMYCIN [Suspect]
     Active Substance: VANCOMYCIN
     Indication: Necrotising fasciitis
     Dosage: TWO DOSES OF VANCOMYCIN 1000 MG IV
     Route: 042
  4. IBUPROFEN [Suspect]
     Active Substance: IBUPROFEN
     Indication: Necrotising fasciitis
     Route: 065

REACTIONS (2)
  - Acute kidney injury [Recovered/Resolved]
  - Hypertension [Unknown]
